FAERS Safety Report 8044253 (Version 4)
Quarter: 2014Q4

REPORT INFORMATION
  Report Type: Spontaneous
  Country: US (occurrence: US)
  Receive Date: 20110719
  Receipt Date: 20141023
  Transmission Date: 20150529
  Serious: Yes (Life-Threatening, Hospitalization, Congenital Anomaly, Other)
  Sender: FDA-Public Use
  Company Number: US-PFIZER INC-2011158575

PATIENT
  Sex: Female
  Weight: 3.4 kg

DRUGS (11)
  1. PROTONIX [Concomitant]
     Active Substance: PANTOPRAZOLE SODIUM
     Dosage: 40 MG, DAILY
     Route: 064
     Dates: start: 20050926, end: 20051224
  2. FAMOTIDINE. [Concomitant]
     Active Substance: FAMOTIDINE
     Dosage: 20 MG, 2X/DAY
     Route: 064
     Dates: start: 20050817, end: 20050915
  3. EFFEXOR XR [Suspect]
     Active Substance: VENLAFAXINE HYDROCHLORIDE
     Indication: DEPRESSION
     Dosage: 75 MG, UNK
     Route: 064
     Dates: start: 20050116
  4. VENLAFAXINE HCL [Suspect]
     Active Substance: VENLAFAXINE HYDROCHLORIDE
     Dosage: UNK
     Route: 064
  5. PROMETHAZINE [Concomitant]
     Active Substance: PROMETHAZINE\PROMETHAZINE HYDROCHLORIDE
     Indication: NAUSEA
     Dosage: 25 MG, 3X/DAY (EVERY 8 HOURS)
     Route: 064
     Dates: start: 20050614
  6. CITRACAL [Concomitant]
     Active Substance: CALCIUM CITRATE
     Dosage: UNK
     Route: 064
  7. ROCEPHIN [Concomitant]
     Active Substance: CEFTRIAXONE SODIUM
     Dosage: 250 MG, AS DIRECTED
     Route: 064
     Dates: start: 20051209
  8. EFFEXOR [Suspect]
     Active Substance: VENLAFAXINE HYDROCHLORIDE
     Indication: DEPRESSION
     Dosage: 37.5 MG, DAILY AS DIRECTED
     Route: 064
     Dates: start: 20050419
  9. PRECARE PRENATAL VITAMINS [Concomitant]
     Dosage: 1 DF, DAILY
     Route: 064
     Dates: start: 20050524
  10. AMBIEN [Concomitant]
     Active Substance: ZOLPIDEM TARTRATE
     Dosage: 10 MG, 1X/DAY (EVERY NIGHT AT BEDTIME)
     Route: 064
     Dates: start: 20050505, end: 20051229
  11. PROMETHAZINE [Concomitant]
     Active Substance: PROMETHAZINE\PROMETHAZINE HYDROCHLORIDE
     Indication: VOMITING

REACTIONS (12)
  - Persistent foetal circulation [Unknown]
  - Acute respiratory failure [Unknown]
  - Pneumonia [Unknown]
  - Tricuspid valve incompetence [Unknown]
  - Atrial septal defect [Unknown]
  - Maternal exposure timing unspecified [Unknown]
  - Mitral valve incompetence [Unknown]
  - Patent ductus arteriosus [Recovered/Resolved]
  - Cardiogenic shock [Unknown]
  - Respiratory failure [Unknown]
  - Sepsis neonatal [Unknown]
  - Cyanosis [Unknown]

NARRATIVE: CASE EVENT DATE: 20051226
